FAERS Safety Report 9160427 (Version 1)
Quarter: 2013Q1

REPORT INFORMATION
  Report Type: Spontaneous
  Country: IT (occurrence: None)
  Receive Date: 20130220
  Receipt Date: 20130220
  Transmission Date: 20140127
  Serious: Yes (Other)
  Sender: FDA-Public Use
  Company Number: AUR-APL-2013-01390

PATIENT
  Age: 57 Year
  Sex: Male
  Weight: 54 kg

DRUGS (2)
  1. SERTRALINE (SERTRALINE) (SERTRALINE) [Suspect]
     Indication: PANIC ATTACK
     Route: 048
     Dates: start: 20080101, end: 20121002
  2. RIVOTRIL (CLONAZEPAM) [Concomitant]

REACTIONS (1)
  - Nausea [None]
